FAERS Safety Report 7070941-8 (Version None)
Quarter: 2010Q4

REPORT INFORMATION
  Report Type: 
  Country: None (occurrence: None)
  Receive Date: 20101029
  Receipt Date: 20101022
  Transmission Date: 20110411
  Serious: Yes (Hospitalization)
  Sender: FDA-Public Use
  Company Number: US-US-EMD SERONO, INC.-7020767

PATIENT
  Sex: Female
  Weight: 104 kg

DRUGS (8)
  1. REBIF [Suspect]
     Route: 058
     Dates: start: 20100526, end: 20100101
  2. REBIF [Suspect]
     Route: 058
     Dates: start: 20100101, end: 20100101
  3. REBIF [Suspect]
     Route: 058
     Dates: start: 20100101, end: 20100101
  4. REBIF [Suspect]
     Route: 058
     Dates: start: 20100101
  5. PORTIA-21 [Concomitant]
     Indication: CONTRACEPTION
     Route: 048
  6. VITAMIN B-12 [Concomitant]
     Indication: VITAMIN B12 DECREASED
     Route: 048
  7. ZYRTEC [Concomitant]
     Indication: SEASONAL ALLERGY
     Route: 048
  8. NEURONTIN [Concomitant]
     Indication: BURNING SENSATION
     Route: 048

REACTIONS (1)
  - CHOLELITHIASIS [None]
